FAERS Safety Report 23995896 (Version 1)
Quarter: 2024Q2

REPORT INFORMATION
  Report Type: Report from Study
  Country: US (occurrence: US)
  Receive Date: 20240620
  Receipt Date: 20240620
  Transmission Date: 20240716
  Serious: Yes (Hospitalization, Other)
  Sender: FDA-Public Use
  Company Number: US-ABBVIE-5805348

PATIENT
  Age: 71 Year
  Sex: Female
  Weight: 104 kg

DRUGS (1)
  1. VIIBRYD [Suspect]
     Active Substance: VILAZODONE HYDROCHLORIDE
     Indication: Depression
     Dosage: FORM STRENGTH: 40 MILLIGRAM
     Route: 048
     Dates: start: 2014

REACTIONS (8)
  - Diverticular perforation [Recovering/Resolving]
  - Hernia [Recovered/Resolved]
  - Patella fracture [Recovered/Resolved]
  - Skin discharge [Not Recovered/Not Resolved]
  - Upper limb fracture [Recovered/Resolved]
  - Diverticulitis [Unknown]
  - Spinal fracture [Recovered/Resolved]
  - Fall [Recovered/Resolved]

NARRATIVE: CASE EVENT DATE: 20220927
